FAERS Safety Report 25360839 (Version 3)
Quarter: 2025Q3

REPORT INFORMATION
  Report Type: Spontaneous
  Country: EU (occurrence: EU)
  Receive Date: 20250527
  Receipt Date: 20250902
  Transmission Date: 20251021
  Serious: Yes (Other)
  Sender: AMGEN
  Company Number: EU-AMGEN-DEUSP2025099413

PATIENT
  Age: 85 Year
  Sex: Female
  Weight: 68 kg

DRUGS (4)
  1. XGEVA [Suspect]
     Active Substance: DENOSUMAB
     Indication: Breast cancer
     Dosage: UNK UNK, QMO
     Route: 058
     Dates: start: 202407, end: 20250604
  2. XGEVA [Suspect]
     Active Substance: DENOSUMAB
     Indication: Metastases to bone
  3. KISQALI [Concomitant]
     Active Substance: RIBOCICLIB SUCCINATE
     Indication: Metastases to bone
     Dosage: UNK UNK (200MG), TID
     Dates: start: 202407
  4. LETROZOLE [Concomitant]
     Active Substance: LETROZOLE
     Dates: start: 202407

REACTIONS (1)
  - Deafness [Unknown]

NARRATIVE: CASE EVENT DATE: 20240101
